FAERS Safety Report 21564167 (Version 1)
Quarter: 2022Q4

REPORT INFORMATION
  Report Type: Other
  Country: TH (occurrence: None)
  Receive Date: 20221108
  Receipt Date: 20221108
  Transmission Date: 20230113
  Serious: Yes (Hospitalization, Other)
  Sender: FDA-Public Use
  Company Number: TH-ROCHE-3212022

PATIENT
  Age: 10 Year
  Sex: Male
  Weight: 31.2 kg

DRUGS (11)
  1. RISDIPLAM [Suspect]
     Active Substance: RISDIPLAM
     Indication: Spinal muscular atrophy
     Route: 048
     Dates: start: 20210823
  2. VITAMIN D2 [Concomitant]
     Active Substance: ERGOCALCIFEROL
     Dosage: SIG 2 TAB PER ORAL WEEKLY
     Route: 048
     Dates: start: 20220222
  3. CALTAB (THAILAND) [Concomitant]
     Route: 048
     Dates: start: 20220222
  4. MONTELUKAST [Concomitant]
     Active Substance: MONTELUKAST SODIUM
     Dosage: CHEW TAB SIG 5 MG OD HS
     Route: 048
     Dates: start: 20220615
  5. FLUTICASONE FUROATE [Concomitant]
     Active Substance: FLUTICASONE FUROATE
     Dosage: NASAL SPRAY 27.50 MCG DAILY 1 PUFF HS
     Route: 045
     Dates: start: 20220615
  6. FLUARIX TETRA [Concomitant]
     Active Substance: INFLUENZA VIRUS VACCINE
     Dosage: 15 MCG/0.5ML IM 1 DOSE
     Route: 030
     Dates: start: 20220615
  7. ALBUTEROL [Concomitant]
     Active Substance: ALBUTEROL
     Indication: Asthma
     Dosage: 0.1 MG NASAL SPRAY 2 PUFF
     Route: 045
     Dates: start: 20220804
  8. CETIRIZINE [Concomitant]
     Active Substance: CETIRIZINE HYDROCHLORIDE
     Dosage: SIG 1 TAB(10 MG) PER ORAL HS
     Route: 048
     Dates: start: 20220811
  9. EVOFLO [Concomitant]
     Dosage: EVOHALER(S25+F125) MCG ORAL SPRAY 1 PUFF BID
     Route: 048
     Dates: start: 20221009
  10. CARBOCYSTEINE [Concomitant]
     Active Substance: CARBOCYSTEINE
     Dosage: SYRUP 100 MG/5ML SIG 5 ML PER ORAL TID
     Route: 048
     Dates: start: 20221009
  11. CAVUMOX (THAILAND) [Concomitant]
     Dosage: SYRUP 600 MG/5ML SIG 5.5 ML PER ORAL BID
     Route: 048
     Dates: start: 20221009

REACTIONS (2)
  - Pneumonia [Recovered/Resolved]
  - Influenza [Recovered/Resolved]

NARRATIVE: CASE EVENT DATE: 20220628
